FAERS Safety Report 19720924 (Version 1)
Quarter: 2021Q3

REPORT INFORMATION
  Report Type: Spontaneous
  Country: US (occurrence: US)
  Receive Date: 20210818
  Receipt Date: 20210818
  Transmission Date: 20211014
  Serious: Yes (Hospitalization)
  Sender: FDA-Public Use
  Company Number: None

PATIENT
  Sex: Male

DRUGS (8)
  1. ESBRIET [Concomitant]
     Active Substance: PIRFENIDONE
  2. ESBRIET [Suspect]
     Active Substance: PIRFENIDONE
     Indication: IDIOPATHIC PULMONARY FIBROSIS
     Route: 048
  3. CHOLECALCIFE CRY USP/NF [Concomitant]
  4. MULTIVIT/FL CHW [Concomitant]
  5. ASPIRIN TAB [Concomitant]
  6. LEVOTHYROXIN TAB [Concomitant]
  7. ESBRIET [Concomitant]
     Active Substance: PIRFENIDONE
  8. SACCHAROMYCE CAP COULARDI [Concomitant]

REACTIONS (1)
  - Pneumonia [None]
